FAERS Safety Report 16919555 (Version 5)
Quarter: 2020Q1

REPORT INFORMATION
  Report Type: Spontaneous
  Country: JP (occurrence: JP)
  Receive Date: 20191015
  Receipt Date: 20200330
  Transmission Date: 20200409
  Serious: Yes (Life-Threatening, Hospitalization, Disabling, Other)
  Sender: FDA-Public Use
  Company Number: JP-MALLINCKRODT-T201906901

PATIENT
  Age: 56 Year
  Sex: Female
  Weight: 45 kg

DRUGS (10)
  1. OFIRMEV [Suspect]
     Active Substance: ACETAMINOPHEN
     Indication: ABDOMINAL ABSCESS
     Dosage: 700 MILLIGRAM
     Route: 042
     Dates: start: 20180909, end: 20180910
  2. OFIRMEV [Suspect]
     Active Substance: ACETAMINOPHEN
     Dosage: 700 MILLIGRAM
     Route: 042
     Dates: start: 20180925, end: 20180925
  3. TAZOBACTAM SODIUM AND PIPERACILLIN SODIUM [Suspect]
     Active Substance: PIPERACILLIN SODIUM\TAZOBACTAM SODIUM
     Dosage: 4.5 GRAM, Q6H
     Route: 042
     Dates: start: 20180826, end: 20180910
  4. TAZOBACTAM SODIUM AND PIPERACILLIN SODIUM [Suspect]
     Active Substance: PIPERACILLIN SODIUM\TAZOBACTAM SODIUM
     Dosage: 4.5 GRAM, Q6H
     Route: 042
     Dates: start: 20180912, end: 20180925
  5. COCARL [Suspect]
     Active Substance: ACETAMINOPHEN
     Indication: ABDOMINAL ABSCESS
     Dosage: UNK
     Route: 048
  6. TAZOBACTAM SODIUM AND PIPERACILLIN SODIUM [Suspect]
     Active Substance: PIPERACILLIN SODIUM\TAZOBACTAM SODIUM
     Indication: ABDOMINAL ABSCESS
     Dosage: 4.5 GRAM, Q8H
     Route: 042
     Dates: start: 20180824, end: 20180825
  7. ATELEC [Concomitant]
     Active Substance: CILNIDIPINE
     Indication: HYPERTENSION
     Dosage: 20 MILLIGRAM, QD
     Route: 048
     Dates: start: 20180905, end: 20180927
  8. TAKECAB [Suspect]
     Active Substance: VONOPRAZAN FUMURATE
     Indication: DUODENITIS
     Dosage: 20 MILLIGRAM, QD
     Route: 048
     Dates: start: 20180905, end: 20180926
  9. AZACTAM [Concomitant]
     Active Substance: AZTREONAM
     Indication: ABDOMINAL ABSCESS
     Dosage: 1 GRAM, Q12H
     Route: 042
     Dates: start: 20180929, end: 20181001
  10. TAKEPRON [Suspect]
     Active Substance: LANSOPRAZOLE
     Indication: GASTROINTESTINAL MUCOSAL DISORDER
     Dosage: 60 MILLIGRAM PER DAY
     Route: 042
     Dates: start: 20180825, end: 20180904

REACTIONS (7)
  - Drug reaction with eosinophilia and systemic symptoms [Recovering/Resolving]
  - Rash [Recovering/Resolving]
  - Eosinophil count increased [Recovering/Resolving]
  - Cardiac failure [Recovering/Resolving]
  - Liver disorder [Recovering/Resolving]
  - Renal disorder [Recovering/Resolving]
  - Respiratory failure [Recovering/Resolving]

NARRATIVE: CASE EVENT DATE: 20180920
